FAERS Safety Report 7351202-6 (Version None)
Quarter: 2011Q1

REPORT INFORMATION
  Report Type: 
  Country: None (occurrence: None)
  Receive Date: 20110314
  Receipt Date: 20110302
  Transmission Date: 20110831
  Serious: Yes (Hospitalization)
  Sender: FDA-Public Use
  Company Number: IE-MEDIMMUNE-MEDI-0012812

PATIENT
  Sex: Female

DRUGS (2)
  1. SYNAGIS [Suspect]
     Route: 030
     Dates: start: 20101208, end: 20110101
  2. SYNAGIS [Suspect]
     Route: 030
     Dates: start: 20110201, end: 20110201

REACTIONS (5)
  - VOMITING [None]
  - RHINORRHOEA [None]
  - PYREXIA [None]
  - IRRITABILITY [None]
  - HYPOPHAGIA [None]
